FAERS Safety Report 8390173-0 (Version None)
Quarter: 2012Q2

REPORT INFORMATION
  Report Type: 
  Country: None (occurrence: None)
  Receive Date: 20120529
  Receipt Date: 20120522
  Transmission Date: 20120825
  Serious: Yes (Hospitalization)
  Sender: FDA-Public Use
  Company Number: FR-PFIZER INC-2012097130

PATIENT
  Age: 70 Year
  Sex: Male

DRUGS (6)
  1. DIGOXIN [Concomitant]
  2. LYRICA [Suspect]
     Dosage: 150 MG DAILY
  3. PENTOXIFYLLINE [Concomitant]
  4. LYRICA [Suspect]
     Indication: POLYNEUROPATHY
     Dosage: 100 MG DAILY
  5. HYDROCORTISONE [Concomitant]
     Indication: ADRENAL DISORDER
  6. LASIX [Concomitant]

REACTIONS (3)
  - DIABETES MELLITUS [None]
  - PAIN IN EXTREMITY [None]
  - BALANCE DISORDER [None]
